FAERS Safety Report 24294628 (Version 1)
Quarter: 2024Q3

REPORT INFORMATION
  Report Type: Report from Study
  Country: JP (occurrence: JP)
  Receive Date: 20240906
  Receipt Date: 20240906
  Transmission Date: 20241017
  Serious: Yes (Other)
  Sender: BAUSCH AND LOMB
  Company Number: JP-BAUSCHBL-2024BNL032769

PATIENT
  Age: 70 Year
  Sex: Male

DRUGS (1)
  1. VERTEPORFIN [Suspect]
     Active Substance: VERTEPORFIN
     Indication: Choroidal neovascularisation
     Dosage: 6 MG OF VERTEPORFIN/ SQUARE METER OF BODY SURFACE AREA
     Route: 042

REACTIONS (2)
  - Serous retinal detachment [Unknown]
  - Drug ineffective [Unknown]
